FAERS Safety Report 11428475 (Version 1)
Quarter: 2015Q3

REPORT INFORMATION
  Report Type: Spontaneous
  Country: US (occurrence: US)
  Receive Date: 20150828
  Receipt Date: 20150828
  Transmission Date: 20151125
  Serious: No
  Sender: FDA-Public Use
  Company Number: US-ROCHE-1241540

PATIENT
  Sex: Male

DRUGS (5)
  1. VICTRELIS [Concomitant]
     Active Substance: BOCEPREVIR
  2. RIBAVIRIN. [Suspect]
     Active Substance: RIBAVIRIN
     Indication: HEPATITIS C
     Dosage: DAILY
     Route: 065
     Dates: start: 20130618
  3. RIBAVIRIN. [Suspect]
     Active Substance: RIBAVIRIN
     Route: 065
     Dates: start: 2004
  4. PEGASYS [Suspect]
     Active Substance: PEGINTERFERON ALFA-2A
     Indication: HEPATITIS C
     Route: 065
     Dates: start: 20130618
  5. PEGASYS [Suspect]
     Active Substance: PEGINTERFERON ALFA-2A
     Dosage: FOR 9-10 MONTHS
     Route: 065
     Dates: start: 2004

REACTIONS (5)
  - Pain in extremity [Unknown]
  - Restless legs syndrome [Unknown]
  - Insomnia [Unknown]
  - Drug intolerance [Unknown]
  - Choking [Unknown]
